FAERS Safety Report 7605584-8 (Version None)
Quarter: 2011Q3

REPORT INFORMATION
  Report Type: 
  Country: None (occurrence: None)
  Receive Date: 20110713
  Receipt Date: 20110704
  Transmission Date: 20111222
  Serious: Yes (Other)
  Sender: FDA-Public Use
  Company Number: JP-ASTRAZENECA-2011SE38505

PATIENT
  Age: 81 Year
  Sex: Male
  Weight: 78 kg

DRUGS (15)
  1. TRICHLORMETHIAZIDE [Concomitant]
     Indication: HYPERTENSION
     Dosage: DAILY
     Route: 048
     Dates: start: 20070510
  2. GOODMIN [Concomitant]
     Indication: INSOMNIA
     Route: 048
     Dates: start: 20100906
  3. SENNOSIDE [Concomitant]
     Indication: CONSTIPATION
     Dosage: DAILY
     Route: 048
     Dates: start: 20100906
  4. ALLOPURINOL [Concomitant]
     Indication: HYPERURICAEMIA
     Dosage: DAILY
     Route: 048
     Dates: start: 20100907
  5. AMLODIPINE [Concomitant]
     Indication: HYPERTENSION
     Dosage: DAILY
     Route: 048
     Dates: start: 20110526
  6. SYMBICORT [Suspect]
     Indication: CHRONIC OBSTRUCTIVE PULMONARY DISEASE
     Dosage: 160/4.5 UG TWO INHALATION TWO TIMES A DAY
     Route: 055
     Dates: start: 20100924
  7. LOXOPROFEN [Concomitant]
     Indication: OSTEOARTHRITIS
     Dosage: TWO TIMES DAILY
     Route: 048
     Dates: start: 20100906
  8. MAINHEART [Concomitant]
     Indication: HYPERTENSION
     Dosage: DAILY
     Route: 048
     Dates: start: 20100907
  9. INFLUENZA HA VACCINE [Concomitant]
     Indication: ANTIVIRAL PROPHYLAXIS
     Dosage: DOSE UNKNOWN
     Route: 048
     Dates: start: 20101119, end: 20101119
  10. CANDESARTAN CILEXETIL [Concomitant]
     Indication: HYPERTENSION
     Dosage: DAILY
     Route: 048
     Dates: start: 20110217
  11. OVULANZE [Concomitant]
     Indication: GASTRITIS
     Dosage: DAILY
     Route: 048
     Dates: start: 20100906
  12. MOHRUS TAPE [Concomitant]
     Indication: OSTEOARTHRITIS
     Dosage: AS REQUIRED
     Route: 062
     Dates: start: 20080605
  13. SPIRIVA [Concomitant]
     Indication: CHRONIC OBSTRUCTIVE PULMONARY DISEASE
     Route: 055
     Dates: start: 20100614
  14. ALBUTEROL SULFATE [Concomitant]
     Indication: CHRONIC OBSTRUCTIVE PULMONARY DISEASE
     Route: 055
     Dates: start: 20100906
  15. REBAMIPIDE [Concomitant]
     Indication: GASTRITIS
     Dosage: DAILY
     Route: 048
     Dates: start: 20100906

REACTIONS (1)
  - PROSTATE CANCER [None]
